FAERS Safety Report 8287333-6 (Version None)
Quarter: 2012Q2

REPORT INFORMATION
  Report Type: 
  Country: None (occurrence: None)
  Receive Date: 20120411
  Receipt Date: 20120402
  Transmission Date: 20120825
  Serious: No
  Sender: FDA-Public Use
  Company Number: JPI-P-020544

PATIENT
  Age: 63 Year
  Sex: Female

DRUGS (1)
  1. XYREM [Suspect]
     Indication: HYPERSOMNIA
     Dosage: 6 GM (3 GM, 2 IN 1 D), ORAL
     Route: 048
     Dates: start: 20050315

REACTIONS (1)
  - SCIATICA [None]
